FAERS Safety Report 15699147 (Version 1)
Quarter: 2018Q4

REPORT INFORMATION
  Report Type: Spontaneous
  Country: US (occurrence: US)
  Receive Date: 20181207
  Receipt Date: 20181207
  Transmission Date: 20190205
  Serious: No
  Sender: FDA-Public Use
  Company Number: US-PFIZER INC-2018503092

PATIENT
  Age: 38 Year
  Sex: Female

DRUGS (1)
  1. LYRICA [Suspect]
     Active Substance: PREGABALIN
     Dosage: 200 MG, 2X/DAY
     Route: 048

REACTIONS (5)
  - Back disorder [Unknown]
  - Cyst [Unknown]
  - Condition aggravated [Unknown]
  - Neuralgia [Unknown]
  - Spinal disorder [Unknown]

NARRATIVE: CASE EVENT DATE: 200401
